FAERS Safety Report 10594270 (Version 1)
Quarter: 2014Q4

REPORT INFORMATION
  Report Type: Spontaneous
  Country: US (occurrence: US)
  Receive Date: 20141119
  Receipt Date: 20141119
  Transmission Date: 20150529
  Serious: Yes (Other)
  Sender: FDA-Public Use
  Company Number: US-CUBIST PHARMACEUTICALS, INC.-2014CBST001547

PATIENT

DRUGS (3)
  1. CUBICIN [Suspect]
     Active Substance: DAPTOMYCIN
     Indication: OFF LABEL USE
  2. CUBICIN [Suspect]
     Active Substance: DAPTOMYCIN
     Indication: OTITIS EXTERNA
     Dosage: UNK UNK, UNK
     Route: 065
  3. MEROPENEM. [Concomitant]
     Active Substance: MEROPENEM
     Indication: OTITIS EXTERNA
     Dosage: UNK UNK, UNK
     Route: 065

REACTIONS (3)
  - Off label use [Unknown]
  - Dermatitis atopic [Unknown]
  - Staphylococcal infection [Unknown]
